FAERS Safety Report 8555449-2 (Version None)
Quarter: 2012Q3

REPORT INFORMATION
  Report Type: 
  Country: None (occurrence: None)
  Receive Date: 20120731
  Receipt Date: 20110825
  Transmission Date: 20120928
  Serious: Yes (Other)
  Sender: FDA-Public Use
  Company Number: US-ASTRAZENECA-2011SE12682

PATIENT

DRUGS (23)
  1. PRILOSEC OTC [Concomitant]
     Dates: start: 20060616
  2. LEVOTHYROXINE SODIUM [Concomitant]
     Dosage: 50 TO 112 MCG
     Dates: start: 20060418
  3. RISPERDAL [Concomitant]
     Dates: start: 20060427
  4. FLUOXETINE HYDROCHLORIDE [Concomitant]
     Dates: start: 20060427
  5. BUTALBITAL ACETAMINOPHEN AND CAFFEINE [Concomitant]
     Dates: start: 20060427
  6. AMITRIPTYLINE HCL [Concomitant]
     Dates: start: 20060530
  7. BUSPIRONE HCL [Concomitant]
     Dates: start: 20081017
  8. TRICOR [Concomitant]
     Dates: start: 20081020
  9. ALPRAZOLAM [Concomitant]
     Dates: start: 20060419
  10. CYCLOBENZAPRINE [Concomitant]
     Dates: start: 20060523
  11. SEROQUEL [Suspect]
     Dosage: 100 TO 300 MG
     Route: 048
     Dates: start: 20060613
  12. TEMAZEPAM [Concomitant]
     Dates: start: 20080924
  13. ZOLPIDEM TARTRATE [Concomitant]
     Dates: start: 20081229
  14. AMITRIPTYLINE HCL [Concomitant]
     Dates: start: 20081222
  15. ZELNORM [Concomitant]
     Dates: start: 20060725
  16. LITHIUM CARBONATE [Concomitant]
     Dates: start: 20081103
  17. ABILIFY [Concomitant]
     Dates: start: 20081114
  18. METHOCARBAMOL [Concomitant]
     Dates: start: 20081119
  19. OXYCODONE AND ACETAMINOPHEN [Concomitant]
     Dosage: 5/325 MG
     Dates: start: 20060518
  20. DEPAKOTE ER [Concomitant]
     Dates: start: 20060625
  21. LAMICTAL [Concomitant]
     Dates: start: 20081008
  22. BUDEPRION ER [Concomitant]
     Dates: start: 20081210
  23. PHENAZOPYRIDINE HCL TAB [Concomitant]
     Dates: start: 20060520

REACTIONS (3)
  - TYPE 2 DIABETES MELLITUS [None]
  - PANCREATITIS [None]
  - DIABETIC COMA [None]
